FAERS Safety Report 19180273 (Version 1)
Quarter: 2021Q2

REPORT INFORMATION
  Report Type: Spontaneous
  Country: US (occurrence: US)
  Receive Date: 20210426
  Receipt Date: 20210426
  Transmission Date: 20210717
  Serious: No
  Sender: FDA-Public Use
  Company Number: US-PFIZER INC-2021359804

PATIENT
  Age: 52 Year
  Sex: Female

DRUGS (2)
  1. IBRANCE [Suspect]
     Active Substance: PALBOCICLIB
     Dosage: 100 MG, UNK
     Dates: start: 20210328
  2. IBRANCE [Suspect]
     Active Substance: PALBOCICLIB
     Dosage: 100 MG, UNK
     Dates: start: 20210325

REACTIONS (2)
  - Nausea [Unknown]
  - Fatigue [Unknown]
